FAERS Safety Report 8437415-0 (Version None)
Quarter: 2012Q2

REPORT INFORMATION
  Report Type: 
  Country: None (occurrence: None)
  Receive Date: 20120614
  Receipt Date: 20120322
  Transmission Date: 20120825
  Serious: No
  Sender: FDA-Public Use
  Company Number: US-AMGEN-USASP2012014373

PATIENT
  Age: 60 Year
  Sex: Female
  Weight: 64 kg

DRUGS (12)
  1. REFLEX [Concomitant]
     Indication: INFECTION
     Dosage: 500 MG, Q8H
     Dates: start: 20080101
  2. LORAZEPAM [Concomitant]
     Indication: SLEEP DISORDER
     Dosage: 0.5 MG, PRN
     Dates: start: 20090101
  3. MAXALT [Concomitant]
     Indication: MIGRAINE
     Dosage: 10 MG, PRN
     Dates: start: 20060101
  4. VITAMIN D [Concomitant]
     Dosage: 4000 IU, QD
     Dates: start: 20090101
  5. MIRALAX [Concomitant]
     Indication: UNEVALUABLE EVENT
     Dosage: UNK UNK, QH
     Dates: start: 20090101
  6. CLONIDINE [Concomitant]
     Indication: HYPERTENSION
     Dosage: 0.2 MG, QD
     Route: 048
     Dates: start: 20080401
  7. OMEPRAZOLE [Concomitant]
     Indication: GASTROOESOPHAGEAL REFLUX DISEASE
     Dosage: 20 MG, QD
     Route: 048
     Dates: start: 20080401
  8. PROLIA [Suspect]
     Indication: OSTEOPOROSIS POSTMENOPAUSAL
     Dosage: 60 MG, Q6MO
     Route: 058
     Dates: start: 20120106
  9. PERCOCET [Concomitant]
     Indication: PAIN
     Dosage: UNK
     Dates: start: 20080401
  10. METOPROLOL TARTRATE [Concomitant]
     Indication: HYPERTENSION
     Dosage: 25 MG, BID
     Route: 048
     Dates: start: 20080401
  11. CITALOPRAM [Concomitant]
     Indication: NERVOUSNESS
     Dosage: 20 MG, ONE TIME DOSE
     Route: 048
     Dates: start: 20080401
  12. GABAPENTIN [Concomitant]
     Indication: PAIN IN EXTREMITY
     Dosage: 600 MG, Q8H
     Dates: start: 20080101

REACTIONS (3)
  - PAIN IN EXTREMITY [None]
  - ARTHRALGIA [None]
  - BACK PAIN [None]
